FAERS Safety Report 11669214 (Version 1)
Quarter: 2015Q4

REPORT INFORMATION
  Report Type: Spontaneous
  Country: FR (occurrence: FR)
  Receive Date: 20151027
  Receipt Date: 20151027
  Transmission Date: 20160304
  Serious: Yes (Other)
  Sender: FDA-Public Use
  Company Number: FR-CONCORDIA PHARMACEUTICALS INC.-CO-UX-FR-2015-040

PATIENT
  Age: 55 Year
  Sex: Female

DRUGS (7)
  1. XATRAL [Suspect]
     Active Substance: ALFUZOSIN
     Indication: URINARY TRACT DISORDER
     Route: 048
     Dates: start: 20150716, end: 20150722
  2. FRAGMIN [Concomitant]
     Active Substance: DALTEPARIN SODIUM
  3. DUPHALAC [Concomitant]
     Active Substance: LACTULOSE
  4. PANTOPRAZOLE [Concomitant]
     Active Substance: PANTOPRAZOLE SODIUM
  5. PHLOROGLUCINOL [Suspect]
     Active Substance: PHLOROGLUCINOL
     Indication: PAIN
     Route: 048
     Dates: start: 20150713, end: 20150722
  6. FLUOXETINE HYDROCHLORIDE. [Concomitant]
     Active Substance: FLUOXETINE HYDROCHLORIDE
  7. KARDEGIC [Concomitant]
     Active Substance: ASPIRIN LYSINE

REACTIONS (4)
  - Off label use [Unknown]
  - Aspartate aminotransferase increased [Recovered/Resolved]
  - Alanine aminotransferase increased [Recovered/Resolved]
  - Blood alkaline phosphatase increased [Recovered/Resolved]

NARRATIVE: CASE EVENT DATE: 20150718
